FAERS Safety Report 7530920-0 (Version None)
Quarter: 2011Q2

REPORT INFORMATION
  Report Type: 
  Country: None (occurrence: None)
  Receive Date: 20110608
  Receipt Date: 20110531
  Transmission Date: 20111010
  Serious: Yes (Hospitalization)
  Sender: FDA-Public Use
  Company Number: JP-BRISTOL-MYERS SQUIBB COMPANY-15809130

PATIENT
  Sex: Female
  Weight: 42 kg

DRUGS (7)
  1. ERBITUX [Suspect]
     Indication: COLON CANCER
     Dosage: 9MAY2011:540MG 340MG:16MAY TO ONG
     Route: 041
     Dates: start: 20110509
  2. OXALIPLATIN [Suspect]
     Indication: COLON CANCER
     Route: 041
     Dates: start: 20110509
  3. FLUOROURACIL [Suspect]
     Indication: COLON CANCER
     Dosage: 3200MG:09MAY2011 TO ONG
     Route: 041
     Dates: start: 20110509
  4. LEUCOVORIN CALCIUM [Suspect]
     Indication: COLON CANCER
     Route: 041
     Dates: start: 20110509
  5. RAMELTEON [Concomitant]
     Indication: ANTIEMETIC SUPPORTIVE CARE
     Route: 048
     Dates: start: 20110509, end: 20110509
  6. DECADRON [Concomitant]
     Indication: ANTIEMETIC SUPPORTIVE CARE
     Dosage: ALSO TAKEN VIA ORAL 8MG:10MAY TO 12MAY2011
     Route: 042
     Dates: start: 20110509, end: 20110512
  7. KYTRIL [Concomitant]
     Indication: ANTIEMETIC SUPPORTIVE CARE
     Route: 042
     Dates: start: 20110509, end: 20110512

REACTIONS (3)
  - PLATELET COUNT DECREASED [None]
  - STOMATITIS [None]
  - DECREASED APPETITE [None]
